FAERS Safety Report 5388742-5 (Version None)
Quarter: 2007Q3

REPORT INFORMATION
  Report Type: 
  Country: None (occurrence: None)
  Receive Date: 20070712
  Receipt Date: 20070703
  Transmission Date: 20080115
  Serious: Yes (Death, Life-Threatening, Hospitalization)
  Sender: FDA-Public Use
  Company Number: 430014M07USA

PATIENT
  Age: 67 Year
  Sex: Male

DRUGS (4)
  1. NOVANTRONE [Suspect]
     Indication: ACUTE MYELOID LEUKAEMIA
     Dates: start: 20070222, end: 20070226
  2. CEP-701 (INVESTIGATIONAL DRUG) [Suspect]
     Dosage: 80 MG, 2 IN 1 DAYS, ORAL
     Route: 048
     Dates: start: 20070228, end: 20070310
  3. ETOPOSIDE [Suspect]
     Dates: start: 20070222, end: 20070226
  4. CYTARABINE [Suspect]
     Dates: start: 20070222, end: 20070226

REACTIONS (25)
  - AGITATION [None]
  - ASPERGILLOSIS [None]
  - BLOOD PH DECREASED [None]
  - BRONCHOALVEOLAR LAVAGE ABNORMAL [None]
  - CEREBELLAR INFARCTION [None]
  - DISORIENTATION [None]
  - ENTEROCOCCAL BACTERAEMIA [None]
  - FEBRILE NEUTROPENIA [None]
  - HAEMODYNAMIC INSTABILITY [None]
  - HERPES SIMPLEX [None]
  - HYPERTENSION [None]
  - HYPOTENSION [None]
  - LUNG INFECTION PSEUDOMONAL [None]
  - MENTAL STATUS CHANGES [None]
  - MUCOSAL INFLAMMATION [None]
  - OEDEMA [None]
  - PATHOGEN RESISTANCE [None]
  - PNEUMONIA FUNGAL [None]
  - PSEUDOMONAS INFECTION [None]
  - RENAL FAILURE ACUTE [None]
  - RESPIRATORY FAILURE [None]
  - SEPSIS [None]
  - SEPTIC EMBOLUS [None]
  - STAPHYLOCOCCAL BACTERAEMIA [None]
  - SUPRAVENTRICULAR TACHYCARDIA [None]
